FAERS Safety Report 8010776 (Version 3)
Quarter: 2012Q4

REPORT INFORMATION
  Report Type: 
  Country: US (occurrence: US)
  Receive Date: 20110627
  Receipt Date: 20121214
  Transmission Date: 20130627
  Serious: Yes (Hospitalization)
  Sender: FDA-Public Use
  Company Number: US-BAYER-2011-052480

PATIENT
  Age: 31 Year
  Sex: Female
  Weight: 108.84 kg

DRUGS (24)
  1. YAZ [Suspect]
     Dosage: UNK
     Dates: start: 200702, end: 200811
  2. YASMIN [Suspect]
     Dosage: UNK
     Dates: start: 200603, end: 200611
  3. OCELLA [Suspect]
     Indication: PRODUCT USED FOR UNKNOWN INDICATION
     Dosage: UNK
     Dates: start: 200812, end: 200911
  4. ANTIBIOTICS [Concomitant]
     Indication: INFECTION NOS
  5. FIORICET [Concomitant]
     Indication: MIGRAINE
     Dosage: UNK
     Dates: start: 200507, end: 200907
  6. ALBUTEROL [Concomitant]
     Indication: ASTHMA
     Dosage: 2.5 mg/0.5 mL
     Dates: start: 2008
  7. NSAID^S [Concomitant]
     Indication: PAIN NOS
     Dosage: UNK
     Dates: start: 1990, end: 2009
  8. PAXIL [Concomitant]
     Indication: ANXIETY
     Dosage: 20 mg, UNK
     Dates: start: 1997
  9. PAXIL [Concomitant]
     Indication: PANIC DISORDER
  10. ZYRTEC [Concomitant]
     Indication: SEASONAL ALLERGY
     Dosage: UNK
     Dates: start: 1997
  11. ACIPHEX [Concomitant]
     Dosage: UNK
     Dates: start: 2009
  12. CLARINEX [DESLORATADINE] [Concomitant]
     Dosage: 5 mg, UNK
  13. CARAFATE [Concomitant]
     Dosage: 1 gm/10 mL
  14. CIPROFLOXACIN [Concomitant]
     Dosage: 250 mg, UNK
  15. CEPHALEXIN [Concomitant]
     Dosage: 500 mg, UNK
  16. ALPRAZOLAM [Concomitant]
     Dosage: 0.25 mg, UNK
  17. AMOXICILLIN [Concomitant]
     Dosage: 875 mg, UNK
  18. XYZAL [Concomitant]
     Dosage: 5 mg, every day
     Route: 048
  19. NEXIUM [Concomitant]
     Dosage: 40 mg, every day
     Route: 048
  20. TUSSIONEX [Concomitant]
  21. VALTREX [Concomitant]
     Dosage: 1 mg, UNK
  22. CEFUROXIME [Concomitant]
     Dosage: 500 mg, UNK
  23. PREDNISONE [Concomitant]
     Dosage: 10 mg, UNK
  24. OXYCODONE/APAP [Concomitant]

REACTIONS (7)
  - Pulmonary embolism [None]
  - Deep vein thrombosis [None]
  - Pain in extremity [None]
  - Injury [Unknown]
  - Pain [Unknown]
  - Anxiety [Unknown]
  - Anhedonia [None]
